FAERS Safety Report 10391921 (Version 1)
Quarter: 2014Q3

REPORT INFORMATION
  Report Type: Report from Study
  Country: US (occurrence: US)
  Receive Date: 20140819
  Receipt Date: 20140819
  Transmission Date: 20150326
  Serious: Yes (Other)
  Sender: FDA-Public Use
  Company Number: PHHY2014US100552

PATIENT
  Age: 47 Year
  Sex: Female

DRUGS (44)
  1. EPOETIN ALFA [Concomitant]
     Active Substance: ERYTHROPOIETIN
     Dosage: UNK UKN, UNK
  2. CINACALCET [Concomitant]
     Active Substance: CINACALCET
     Dosage: UNK UKN, UNK
  3. CISATRACURIUM [Concomitant]
     Active Substance: CISATRACURIUM
     Dosage: UNK UKN, UNK
  4. PHENYLEPHRINE [Concomitant]
     Active Substance: PHENYLEPHRINE\PHENYLEPHRINE HYDROCHLORIDE
     Dosage: UNK UKN, UNK
  5. HYDROMORPHONE [Concomitant]
     Active Substance: HYDROMORPHONE
     Dosage: UNK UKN, UNK
  6. ESOMEPRAZOLE [Concomitant]
     Active Substance: ESOMEPRAZOLE
     Dosage: UNK UKN, UNK
  7. LAMIVUDINE. [Concomitant]
     Active Substance: LAMIVUDINE
     Dosage: UNK UKN, UNK
  8. MYFORTIC [Suspect]
     Active Substance: MYCOPHENOLATE SODIUM
     Indication: RENAL TRANSPLANT
     Dosage: UNK
  9. PROGRAF [Suspect]
     Active Substance: TACROLIMUS\TACROLIMUS ANHYDROUS
     Indication: IMMUNOSUPPRESSION
     Dosage: UNK
  10. FENTANYL. [Concomitant]
     Active Substance: FENTANYL
     Dosage: UNK UKN, UNK
  11. MORPHINE [Concomitant]
     Active Substance: MORPHINE
     Dosage: UNK UKN, UNK
  12. SIMVASTATIN. [Concomitant]
     Active Substance: SIMVASTATIN
     Dosage: UNK UKN, UNK
  13. SULFAMETHOXAZOL W/TRIMETOPRIM [Concomitant]
     Dosage: UNK UKN, UNK
  14. EZETIMIBE, SIMVASTATIN [Concomitant]
     Dosage: UNK UKN, UNK
  15. PROPOFOL. [Concomitant]
     Active Substance: PROPOFOL
     Dosage: UNK UKN, UNK
  16. NEOSTIGMINE [Concomitant]
     Active Substance: NEOSTIGMINE
     Dosage: UNK UKN, UNK
  17. ACETAMINOPHEN. [Concomitant]
     Active Substance: ACETAMINOPHEN
     Dosage: UNK UKN, UNK
  18. HYDROXYZINE [Concomitant]
     Active Substance: HYDROXYZINE\HYDROXYZINE HYDROCHLORIDE
     Dosage: UNK UKN, UNK
  19. LEVOFLOXACIN [Concomitant]
     Active Substance: LEVOFLOXACIN
     Dosage: UNK UKN, UNK
  20. METOCLOPRAMIDE. [Concomitant]
     Active Substance: METOCLOPRAMIDE
     Dosage: UNK UKN, UNK
  21. CEFAZOLIN [Concomitant]
     Active Substance: CEFAZOLIN
     Dosage: UNK UKN, UNK
  22. GLYCOPYRROLATE. [Concomitant]
     Active Substance: GLYCOPYRROLATE
     Dosage: UNK UKN, UNK
  23. SODIUM BICARBONATE. [Concomitant]
     Active Substance: SODIUM BICARBONATE
     Dosage: UNK UKN, UNK
  24. ZEMPLAR [Concomitant]
     Active Substance: PARICALCITOL
     Dosage: UNK UKN, UNK
  25. ANTITHYMOCYTE IMMUNOGLOBULIN [Suspect]
     Active Substance: THYMOCYTE IMMUNE GLOBULIN NOS
     Indication: IMMUNOSUPPRESSION
     Dosage: UNK UKN, UNK
  26. ANTITHYMOCYTE IMMUNOGLOBULIN [Suspect]
     Active Substance: THYMOCYTE IMMUNE GLOBULIN NOS
     Indication: RENAL TRANSPLANT
  27. NYSTATIN. [Concomitant]
     Active Substance: NYSTATIN
     Dosage: UNK UKN, UNK
  28. MYFORTIC [Suspect]
     Active Substance: MYCOPHENOLATE SODIUM
     Dosage: UNK
  29. METHYLPREDNISOLONE [Suspect]
     Active Substance: METHYLPREDNISOLONE
     Indication: IMMUNOSUPPRESSION
     Dosage: UNK UKN, UNK
  30. METHYLPREDNISOLONE [Suspect]
     Active Substance: METHYLPREDNISOLONE
     Indication: RENAL TRANSPLANT
  31. LEVETIRACETAM. [Concomitant]
     Active Substance: LEVETIRACETAM
     Dosage: UNK UKN, UNK
  32. PROGRAF [Suspect]
     Active Substance: TACROLIMUS\TACROLIMUS ANHYDROUS
     Indication: RENAL TRANSPLANT
     Dosage: UNK UKN, UNK
  33. MIDAZOLAM [Concomitant]
     Active Substance: MIDAZOLAM\MIDAZOLAM HYDROCHLORIDE
     Dosage: UNK UKN, UNK
  34. HEPARIN [Concomitant]
     Active Substance: HEPARIN SODIUM
     Dosage: UNK UKN, UNK
  35. MAGNESIUM SULFATE [Concomitant]
     Active Substance: MAGNESIUM SULFATE
     Dosage: UNK UKN, UNK
  36. ATOVAQUONE. [Concomitant]
     Active Substance: ATOVAQUONE
     Dosage: UNK UKN, UNK
  37. RANITIDIN [Concomitant]
     Active Substance: RANITIDINE HYDROCHLORIDE
     Dosage: UNK UKN, UNK
  38. LIDOCAINE. [Concomitant]
     Active Substance: LIDOCAINE
     Dosage: UNK UKN, UNK
  39. ONDANSETRON [Concomitant]
     Active Substance: ONDANSETRON
     Dosage: UNK UKN, UNK
  40. DIPHENHYDRAMINE [Concomitant]
     Active Substance: DIPHENHYDRAMINE
     Dosage: UNK UKN, UNK
  41. DOCUSATE [Concomitant]
     Active Substance: DOCUSATE
     Dosage: UNK UKN, UNK
  42. OXYCODONE AND ACETAMINOPHEN [Concomitant]
     Active Substance: ACETAMINOPHEN\OXYCODONE\OXYCODONE HYDROCHLORIDE
     Dosage: UNK UKN, UNK
  43. POLYETHYLENE GLYCOL [Concomitant]
     Active Substance: POLYETHYLENE GLYCOLS
     Dosage: UNK UKN, UNK
  44. VALGANCICLOVIR [Concomitant]
     Active Substance: VALGANCICLOVIR
     Dosage: UNK UKN, UNK

REACTIONS (15)
  - Abdominal distension [Unknown]
  - Hyponatraemia [Unknown]
  - Renal failure acute [Unknown]
  - Diarrhoea [Unknown]
  - Vomiting [Unknown]
  - Tinnitus [Unknown]
  - Ventricular arrhythmia [Unknown]
  - BK virus infection [Recovered/Resolved]
  - Viraemia [Recovered/Resolved]
  - Pruritus [Unknown]
  - Rash pruritic [Unknown]
  - Pyrexia [Unknown]
  - Hypomagnesaemia [Unknown]
  - Nausea [Unknown]
  - White blood cell count increased [Unknown]

NARRATIVE: CASE EVENT DATE: 20110602
